FAERS Safety Report 7073952-1 (Version None)
Quarter: 2010Q4

REPORT INFORMATION
  Report Type: 
  Country: None (occurrence: None)
  Receive Date: 20101029
  Receipt Date: 20101021
  Transmission Date: 20110411
  Serious: Yes (Other)
  Sender: FDA-Public Use
  Company Number: PHHY2010DE64502

PATIENT
  Sex: Female

DRUGS (1)
  1. RASILEZ [Suspect]
     Dosage: 1 DF, QD

REACTIONS (1)
  - BREAST ENLARGEMENT [None]
